FAERS Safety Report 8258238-1 (Version None)
Quarter: 2012Q2

REPORT INFORMATION
  Report Type: 
  Country: None (occurrence: None)
  Receive Date: 20120404
  Receipt Date: 20120402
  Transmission Date: 20120825
  Serious: Yes (Other)
  Sender: FDA-Public Use
  Company Number: PHFR2012IE001734

PATIENT
  Sex: Female

DRUGS (9)
  1. WARFARIN SODIUM [Concomitant]
     Dosage: 2/3 MG
  2. AMLODIPINE [Concomitant]
     Dosage: 5 MG, QD
  3. PERINDOPRIL ERBUMINE [Concomitant]
     Dosage: 5 MG, QD
  4. DIGOXIN [Concomitant]
     Dosage: 0.125 MG, QD
  5. TEMAZEPAM [Concomitant]
     Dosage: 20 MG, NOCTE
  6. BISOPROLOL FUMARATE [Concomitant]
     Dosage: 5 MG, QD
  7. CLOZARIL [Suspect]
     Indication: SCHIZOPHRENIA
     Dosage: 100 MG
     Route: 048
     Dates: start: 20120211, end: 20120303
  8. PANTOPRAZOLE [Concomitant]
     Dosage: 20 MG, QD
  9. FUROSEMIDE [Concomitant]
     Dosage: 40 MG, UNK

REACTIONS (1)
  - SEDATION [None]
